FAERS Safety Report 9862600 (Version 1)
Quarter: 2014Q1

REPORT INFORMATION
  Report Type: Spontaneous
  Country: US (occurrence: None)
  Receive Date: 20140130
  Receipt Date: 20140130
  Transmission Date: 20141002
  Serious: Yes (Death)
  Sender: FDA-Public Use
  Company Number: 2014AP000399

PATIENT
  Age: 50 Year
  Sex: Male

DRUGS (6)
  1. CITALOPRAM HYDROBROMIDE TABLETS [Suspect]
     Dosage: ; PO
     Route: 048
  2. DILTIAZEM [Suspect]
     Dosage: ; PO
     Route: 048
  3. METHADONE [Suspect]
     Dosage: ; PO
     Route: 048
  4. NORTRIPTYLINE [Suspect]
     Dosage: ; PO
     Route: 048
  5. BUPROPION HYDROCHLORIDE TABLETS [Suspect]
     Dosage: ; PO
     Route: 048
  6. ETHANOL [Suspect]
     Dosage: ; PO
     Route: 048

REACTIONS (1)
  - Death [None]
